FAERS Safety Report 7750163-5 (Version None)
Quarter: 2011Q3

REPORT INFORMATION
  Report Type: 
  Country: None (occurrence: None)
  Receive Date: 20110914
  Receipt Date: 20110914
  Transmission Date: 20111222
  Serious: Yes (Hospitalization)
  Sender: FDA-Public Use
  Company Number: None

PATIENT
  Sex: Male

DRUGS (1)
  1. GAMMAGARD S/D [Suspect]
     Indication: IMMUNODEFICIENCY COMMON VARIABLE
     Dosage: 20GM
     Route: 042
     Dates: start: 20110214, end: 20110907

REACTIONS (4)
  - PRODUCT QUALITY ISSUE [None]
  - HEADACHE [None]
  - DIZZINESS [None]
  - CHILLS [None]
